FAERS Safety Report 24106408 (Version 2)
Quarter: 2024Q3

REPORT INFORMATION
  Report Type: Spontaneous
  Country: DE (occurrence: DE)
  Receive Date: 20240717
  Receipt Date: 20240723
  Transmission Date: 20241017
  Serious: Yes (Life-Threatening, Other)
  Sender: BAYER
  Company Number: DE-BAYER-2024A098217

PATIENT
  Age: 71 Year
  Sex: Male
  Weight: 93 kg

DRUGS (1)
  1. KERENDIA [Suspect]
     Active Substance: FINERENONE
     Indication: Hypoalbuminaemia
     Dosage: 10 MG

REACTIONS (3)
  - Circulatory collapse [Recovered/Resolved]
  - Circulatory collapse [None]
  - Off label use [None]
